FAERS Safety Report 6676935-6 (Version None)
Quarter: 2010Q2

REPORT INFORMATION
  Report Type: 
  Country: None (occurrence: None)
  Receive Date: 20100412
  Receipt Date: 20100330
  Transmission Date: 20101027
  Serious: No
  Sender: FDA-Public Use
  Company Number: IE-JNJFOC-20100400355

PATIENT
  Sex: Male

DRUGS (1)
  1. DURAGESIC-100 [Suspect]
     Indication: BACK PAIN
     Route: 062

REACTIONS (4)
  - APPLICATION SITE IRRITATION [None]
  - PRODUCT ADHESION ISSUE [None]
  - RASH [None]
  - WRONG TECHNIQUE IN DRUG USAGE PROCESS [None]
